FAERS Safety Report 9727955 (Version 1)
Quarter: 2013Q4

REPORT INFORMATION
  Report Type: Spontaneous
  Country: US (occurrence: US)
  Receive Date: 20131204
  Receipt Date: 20131204
  Transmission Date: 20140711
  Serious: Yes (Other)
  Sender: FDA-Public Use
  Company Number: US-BRISTOL-MYERS SQUIBB COMPANY-19850650

PATIENT
  Sex: Female

DRUGS (1)
  1. ABILIFY TABS [Suspect]

REACTIONS (2)
  - Neoplasm malignant [Unknown]
  - Tardive dyskinesia [Unknown]
